FAERS Safety Report 14784459 (Version 2)
Quarter: 2018Q2

REPORT INFORMATION
  Report Type: Report from Study
  Country: NL (occurrence: NL)
  Receive Date: 20180420
  Receipt Date: 20180430
  Transmission Date: 20180711
  Serious: Yes (Hospitalization)
  Sender: FDA-Public Use
  Company Number: NL-BRISTOL-MYERS SQUIBB COMPANY-BMS-2018-034570

PATIENT
  Age: 55 Year
  Sex: Male
  Weight: 85 kg

DRUGS (6)
  1. SENNOSIDE                          /00571901/ [Concomitant]
     Active Substance: SENNOSIDES A AND B
     Indication: PROPHYLAXIS
     Dosage: 30 ML, UNK
     Route: 048
     Dates: start: 20180215
  2. APIXABAN [Suspect]
     Active Substance: APIXABAN
     Indication: PULMONARY EMBOLISM
     Dosage: 10 MG, DAILY
     Route: 048
     Dates: start: 20180317
  3. XELODA [Concomitant]
     Active Substance: CAPECITABINE
     Indication: NEOPLASM MALIGNANT
     Dosage: 3000 MG, TWO WEEKS DAILY AND 1 WEEK NOTHING
     Route: 048
     Dates: start: 20180118
  4. OXALIPLATIN. [Concomitant]
     Active Substance: OXALIPLATIN
     Indication: NEOPLASM MALIGNANT
     Dosage: 303 MG, EVERY 3 WEEKS
     Route: 042
     Dates: start: 20180118
  5. ONDANSETRON [Concomitant]
     Active Substance: ONDANSETRON
     Indication: NEOPLASM MALIGNANT
     Dosage: 16 MG, 2 TIMES A DAY FOR 3 DAYS EVERY CYCLE OF CHEMOTHERAPY
     Route: 048
     Dates: start: 20180118
  6. DEXAMETHASON                       /00016001/ [Concomitant]
     Active Substance: DEXAMETHASONE
     Indication: PROPHYLAXIS
     Dosage: 8 MG, 2 TAB A DAY FOR 10 DAYS
     Route: 048

REACTIONS (3)
  - Syncope [Recovered/Resolved]
  - Chest pain [Recovered/Resolved]
  - Abdominal pain [Not Recovered/Not Resolved]

NARRATIVE: CASE EVENT DATE: 20180326
